FAERS Safety Report 7566801 (Version 10)
Quarter: 2013Q1

REPORT INFORMATION
  Report Type: Spontaneous
  Country: IE (occurrence: IE)
  Receive Date: 20100830
  Receipt Date: 20130319
  Transmission Date: 20140127
  Serious: Yes (Other)
  Sender: FDA-Public Use
  Company Number: PHFR2010IE02029

PATIENT
  Age: 36 Year
  Sex: Male
  Weight: 86.6 kg

DRUGS (11)
  1. CLOZARIL [Suspect]
     Indication: SCHIZOPHRENIA, PARANOID TYPE
     Dosage: 900 MG, QD
     Route: 048
     Dates: start: 20090408
  2. CLOZARIL [Suspect]
     Dosage: 750 MG, QD
     Route: 048
     Dates: start: 20090408
  3. CLOZARIL [Suspect]
     Dosage: UNK
     Route: 048
     Dates: start: 20110825
  4. AMISULPRIDE [Suspect]
     Dosage: UNK
  5. KEPPRA [Suspect]
     Indication: CONVULSION
     Dosage: 1500 MG, BID
     Dates: start: 201004
  6. IMMUNOGLOBULINS [Concomitant]
  7. HALOPERIDOL [Concomitant]
     Dosage: 5 MG, TID
  8. RISPERIDONE [Concomitant]
  9. OLANZAPINE [Concomitant]
  10. QUETIAPINE [Concomitant]
  11. VALPROATE SODIUM [Concomitant]
     Dates: end: 201004

REACTIONS (10)
  - Metabolic disorder [Unknown]
  - Platelet disorder [Unknown]
  - Dystonia [Unknown]
  - Grand mal convulsion [Unknown]
  - Myoclonus [Unknown]
  - Thrombocytopenia [Recovered/Resolved]
  - Platelet count decreased [Unknown]
  - Mean cell haemoglobin concentration increased [Unknown]
  - White blood cell count increased [Unknown]
  - Neutrophil count increased [Unknown]
